FAERS Safety Report 6140289-4 (Version None)
Quarter: 2009Q2

REPORT INFORMATION
  Report Type: 
  Country: None (occurrence: None)
  Receive Date: 20090401
  Receipt Date: 20090319
  Transmission Date: 20091009
  Serious: Yes (Other)
  Sender: FDA-Public Use
  Company Number: PHHY2009BR10367

PATIENT
  Age: 29 Year
  Sex: Male

DRUGS (2)
  1. RASILEZ [Suspect]
     Dosage: 150 MG/DAY
  2. PERINDOPRIL ERBUMINE [Concomitant]
     Dosage: 8 MG/DAY

REACTIONS (2)
  - RENAL FUNCTION TEST ABNORMAL [None]
  - RENAL IMPAIRMENT [None]
